FAERS Safety Report 16165513 (Version 1)
Quarter: 2019Q2

REPORT INFORMATION
  Report Type: Spontaneous
  Country: US (occurrence: US)
  Receive Date: 20190405
  Receipt Date: 20190405
  Transmission Date: 20190711
  Serious: No
  Sender: FDA-Public Use
  Company Number: US-IBSA PHARMA-TIR-2018-0853

PATIENT
  Age: 66 Year
  Sex: Female

DRUGS (7)
  1. TIROSINT [Suspect]
     Active Substance: LEVOTHYROXINE SODIUM
     Indication: THYROIDECTOMY
     Dosage: 75MCG DAILY
     Route: 048
     Dates: start: 2014
  2. TIROSINT [Suspect]
     Active Substance: LEVOTHYROXINE SODIUM
     Dosage: ONE 50MCG CAPSULE 4 DAYS A WEEK AND ONE 75MCG CAPSULE 3 DAYS A WEEK
     Route: 048
  3. TIROSINT [Suspect]
     Active Substance: LEVOTHYROXINE SODIUM
     Indication: THYROIDECTOMY
     Dosage: ONE 75MCG CAPSULE DAILY AND TWO 50MCG CAPSULES A WEEK
     Route: 048
     Dates: start: 2018
  4. TIROSINT [Suspect]
     Active Substance: LEVOTHYROXINE SODIUM
     Dosage: ONE 50MCG CAPSULE 4 DAYS A WEEK AND ONE 75MCG CAPSULE 3 DAYS A WEEK
     Route: 048
  5. TIROSINT [Suspect]
     Active Substance: LEVOTHYROXINE SODIUM
     Dosage: ONE 75MCG CAPSULE DAILY AND TWO 50MCG CAPSULES A WEEK
     Route: 048
     Dates: start: 2018
  6. TIROSINT [Suspect]
     Active Substance: LEVOTHYROXINE SODIUM
     Dosage: ONE 50MCG CAPSULE DAILY FOR 2 DAYS AND ONE 75MCG CAPSULE DAILY FOR 5 DAYS
     Route: 048
     Dates: start: 2018
  7. TIROSINT [Suspect]
     Active Substance: LEVOTHYROXINE SODIUM
     Dosage: ONE 50MCG CAPSULE DAILY FOR 2 DAYS AND ONE 75MCG CAPSULE DAILY FOR 5 DAYS
     Route: 048
     Dates: start: 2018

REACTIONS (6)
  - Alopecia [Recovering/Resolving]
  - Blood thyroid stimulating hormone increased [Unknown]
  - Drug level below therapeutic [Unknown]
  - Drug level above therapeutic [Unknown]
  - Nail disorder [Recovering/Resolving]
  - Nail disorder [Unknown]

NARRATIVE: CASE EVENT DATE: 2018
